FAERS Safety Report 13654760 (Version 1)
Quarter: 2017Q2

REPORT INFORMATION
  Report Type: Spontaneous
  Country: FR (occurrence: FR)
  Receive Date: 20170615
  Receipt Date: 20170615
  Transmission Date: 20170830
  Serious: Yes (Hospitalization)
  Sender: FDA-Public Use
  Company Number: FR-CELGENEUS-FRA-20170511119

PATIENT
  Age: 70 Year
  Sex: Female

DRUGS (10)
  1. PANTOPRAZOLE [Concomitant]
     Active Substance: PANTOPRAZOLE
     Indication: HYPERTENSION
     Dosage: 40 MILLIGRAM
     Route: 048
  2. ZELITREX [Concomitant]
     Active Substance: VALACYCLOVIR HYDROCHLORIDE
     Indication: INFECTION PROPHYLAXIS
     Dosage: 1000 MILLIGRAM
     Route: 048
     Dates: start: 201605
  3. ARANESP [Concomitant]
     Active Substance: DARBEPOETIN ALFA
     Indication: MYELODYSPLASTIC SYNDROME
     Route: 065
  4. REVLIMID [Suspect]
     Active Substance: LENALIDOMIDE
     Indication: MYELODYSPLASTIC SYNDROME
     Route: 048
     Dates: start: 201408, end: 201504
  5. NEORAL [Concomitant]
     Active Substance: CYCLOSPORINE
     Indication: GRAFT VERSUS HOST DISEASE
     Route: 048
     Dates: start: 201605
  6. VIDAZA [Suspect]
     Active Substance: AZACITIDINE
     Indication: MYELODYSPLASTIC SYNDROME
     Route: 041
     Dates: start: 201506, end: 201510
  7. CORTANCYL [Concomitant]
     Active Substance: PREDNISONE
     Indication: HAEMATOLOGICAL MALIGNANCY
     Dosage: 10 MILLIGRAM
     Route: 048
  8. FLUDARABINE [Concomitant]
     Active Substance: FLUDARABINE PHOSPHATE
     Indication: MYELODYSPLASTIC SYNDROME
     Route: 041
     Dates: start: 201605
  9. IMOVANE [Concomitant]
     Active Substance: ZOPICLONE
     Indication: INFECTION PROPHYLAXIS
     Dosage: 3.75 MILLIGRAM
     Route: 048
  10. BISOCE [Concomitant]
     Active Substance: BISOPROLOL
     Indication: HYPERTENSION
     Dosage: 2.5 MILLIGRAM
     Route: 048

REACTIONS (1)
  - Epstein-Barr virus associated lymphoma [Not Recovered/Not Resolved]

NARRATIVE: CASE EVENT DATE: 20170404
